FAERS Safety Report 10791508 (Version 2)
Quarter: 2015Q2

REPORT INFORMATION
  Report Type: Spontaneous
  Country: JP (occurrence: JP)
  Receive Date: 20150213
  Receipt Date: 20150401
  Transmission Date: 20150821
  Serious: Yes (Other)
  Sender: FDA-Public Use
  Company Number: JP-GLAXOSMITHKLINE-JP2015JPN013257

PATIENT
  Age: 11 Year
  Sex: Male

DRUGS (4)
  1. RELENZA [Suspect]
     Active Substance: ZANAMIVIR
     Indication: INFLUENZA
     Dosage: 10 MG, BID
     Route: 055
     Dates: start: 20150128, end: 20150130
  2. ALLELOCK [Concomitant]
     Active Substance: OLOPATADINE HYDROCHLORIDE
     Indication: RHINITIS
     Dosage: 5 MG, BID
     Dates: start: 20150128, end: 20150201
  3. COCARL [Concomitant]
     Active Substance: ACETAMINOPHEN
     Dosage: 15 MG/KG, PRN
     Dates: start: 20150128
  4. MUCODYNE [Concomitant]
     Active Substance: CARBOCYSTEINE
     Indication: RHINITIS
     Dosage: 10 MG/KG, TID
     Dates: start: 20150128, end: 20150201

REACTIONS (2)
  - Hypothermia [Recovered/Resolved]
  - Body temperature decreased [Recovered/Resolved]

NARRATIVE: CASE EVENT DATE: 20150129
